FAERS Safety Report 10043445 (Version 1)
Quarter: 2014Q1

REPORT INFORMATION
  Report Type: Spontaneous
  Country: US (occurrence: US)
  Receive Date: 20140328
  Receipt Date: 20140328
  Transmission Date: 20141002
  Serious: Yes (Other)
  Sender: FDA-Public Use
  Company Number: US-PFIZER INC-2014085474

PATIENT
  Age: 62 Year
  Sex: Female
  Weight: 113.38 kg

DRUGS (4)
  1. CELEBREX [Suspect]
     Indication: OSTEOARTHRITIS
     Dosage: 200 MG, 1X/DAY
     Route: 048
     Dates: start: 201312
  2. OXYBUTYNIN [Concomitant]
     Indication: BLADDER DISORDER
     Dosage: UNK
  3. COUMADIN [Concomitant]
     Indication: PULMONARY ARTERY THROMBOSIS
     Dosage: 5 MG, 1X/DAY
     Route: 048
     Dates: start: 201309
  4. COUMADIN [Concomitant]
     Indication: PROPHYLAXIS

REACTIONS (1)
  - Osteoarthritis [Unknown]
